FAERS Safety Report 7757788-1 (Version None)
Quarter: 2011Q3

REPORT INFORMATION
  Report Type: 
  Country: None (occurrence: None)
  Receive Date: 20110918
  Receipt Date: 20110907
  Transmission Date: 20111222
  Serious: Yes (Life-Threatening)
  Sender: FDA-Public Use
  Company Number: DE-CELGENEUS-062-21880-11031172

PATIENT
  Age: 61 Year
  Sex: Female
  Weight: 71 kg

DRUGS (20)
  1. ACYCLOVIR [Suspect]
     Dosage: 400 MILLIGRAM
     Route: 065
  2. PANTOPRAZOLE [Suspect]
     Dosage: 40 MILLIGRAM
     Route: 065
  3. TORSEMIDE [Suspect]
     Dosage: 10 MILLIGRAM
     Route: 065
  4. VALORON [Concomitant]
     Dosage: 4X20A?
     Route: 065
  5. ENOXAPARIN SODIUM [Concomitant]
     Dosage: .4 MILLILITER
     Route: 058
  6. MOVIPREP [Concomitant]
     Dosage: 2 DOSAGE FORMS
     Route: 065
  7. AMITRIPTYLINE HCL [Concomitant]
     Indication: DEPRESSION
     Dosage: 25 MILLIGRAM
     Route: 065
     Dates: start: 20110306
  8. ALLOPURINOL [Suspect]
     Dosage: 300 MILLIGRAM
     Route: 065
  9. FOLSAN [Concomitant]
     Dosage: 5 MILLIGRAM
     Route: 065
  10. MORPHINE SULFATE [Concomitant]
     Dosage: 20 MILLIGRAM
  11. CLOPIDOGREL BISULFATE [Suspect]
     Dosage: 75 MILLIGRAM
     Route: 065
  12. MORPHINE SULFATE [Concomitant]
     Indication: PAIN
     Dosage: 60 MILLIGRAM
     Route: 065
     Dates: start: 20110307
  13. REVLIMID [Suspect]
     Indication: MULTIPLE MYELOMA
     Dosage: 25 MILLIGRAM
     Route: 048
     Dates: start: 20110224, end: 20110316
  14. DEXAMETHASONE [Suspect]
     Indication: MULTIPLE MYELOMA
     Dosage: 40 MILLIGRAM
     Route: 048
     Dates: start: 20110224, end: 20110317
  15. VALORON [Concomitant]
     Indication: PAIN
     Dosage: 60 MILLIGRAM
     Route: 065
     Dates: start: 20110306, end: 20110307
  16. SOVENTOL GEL [Concomitant]
     Route: 061
     Dates: start: 20110307, end: 20110308
  17. COTRIM DS [Concomitant]
     Route: 065
  18. DEXAMETHASONE [Suspect]
     Dosage: 40 MILLIGRAM
     Route: 048
     Dates: start: 20110310, end: 20110317
  19. ENALAPRIL MALEATE [Suspect]
     Dosage: 10 MILLIGRAM
     Route: 065
  20. LYRICA [Concomitant]
     Indication: PAIN
     Dosage: 50 MILLIGRAM
     Route: 065
     Dates: start: 20110308, end: 20110322

REACTIONS (2)
  - PRESYNCOPE [None]
  - HEPATOTOXICITY [None]
